FAERS Safety Report 8882444 (Version 1)
Quarter: 2012Q4

REPORT INFORMATION
  Report Type: 
  Country: US (occurrence: US)
  Receive Date: 20121102
  Receipt Date: 20121102
  Transmission Date: 20130627
  Serious: Yes (Hospitalization, Other)
  Sender: FDA-Public Use
  Company Number: US-PFIZER INC-2012273870

PATIENT
  Age: 53 Year
  Sex: Female
  Weight: 63.49 kg

DRUGS (6)
  1. EFFEXOR XR [Suspect]
     Indication: DEPRESSION
     Dosage: 150 mg, daily
     Dates: start: 2007, end: 2012
  2. ATENOLOL [Suspect]
     Indication: BLOOD PRESSURE HIGH
     Dosage: 25 mg, daily
     Dates: start: 1992, end: 201208
  3. ATENOLOL [Suspect]
     Dosage: 25 mg, 4x/day
     Dates: start: 201208, end: 201210
  4. ATENOLOL [Suspect]
     Dosage: 25mg daily
     Dates: start: 201210
  5. LISINOPRIL [Suspect]
     Indication: BLOOD PRESSURE HIGH
     Dosage: 2.5 mg, 2x/day
  6. LISINOPRIL [Suspect]
     Indication: CARDIAC DISORDER

REACTIONS (2)
  - Myocardial infarction [Recovered/Resolved]
  - Blood pressure decreased [Unknown]
